FAERS Safety Report 25464651 (Version 1)
Quarter: 2025Q2

REPORT INFORMATION
  Report Type: Report from Study
  Country: US (occurrence: US)
  Receive Date: 20250621
  Receipt Date: 20250621
  Transmission Date: 20250716
  Serious: Yes (Other)
  Sender: ALEXION PHARMACEUTICALS
  Company Number: US-AstraZeneca-CH-00894673A

PATIENT
  Weight: 24 kg

DRUGS (5)
  1. SELUMETINIB [Suspect]
     Active Substance: SELUMETINIB
     Indication: Neurofibromatosis
  2. ONDANSETRON HYDROCHLORIDE [Concomitant]
     Active Substance: ONDANSETRON HYDROCHLORIDE
  3. IRON [Concomitant]
     Active Substance: IRON
  4. IBUPROFEN [Concomitant]
     Active Substance: IBUPROFEN
  5. Tylenol Cold and Flu Daytime [Concomitant]

REACTIONS (1)
  - Haematochezia [Unknown]
